FAERS Safety Report 16242472 (Version 1)
Quarter: 2019Q2

REPORT INFORMATION
  Report Type: Spontaneous
  Country: US (occurrence: US)
  Receive Date: 20190426
  Receipt Date: 20190426
  Transmission Date: 20190711
  Serious: Yes (Other)
  Sender: FDA-Public Use
  Company Number: US-PFIZER INC-2019171690

PATIENT
  Age: 64 Year
  Sex: Male
  Weight: 100.23 kg

DRUGS (3)
  1. TYLENOL [Suspect]
     Active Substance: ACETAMINOPHEN
     Indication: NERVE INJURY
     Dosage: UNK
  2. AMLODIPINE [Concomitant]
     Active Substance: AMLODIPINE BESYLATE
     Indication: HYPERTENSION
     Dosage: 10 MG, 1X/DAY
  3. LYRICA [Suspect]
     Active Substance: PREGABALIN
     Indication: NERVE INJURY
     Dosage: 50 MG, 1X/DAY
     Route: 048
     Dates: start: 201705

REACTIONS (3)
  - Product use in unapproved indication [Unknown]
  - Pain [Unknown]
  - Nephrolithiasis [Unknown]

NARRATIVE: CASE EVENT DATE: 201705
